FAERS Safety Report 4490060-4 (Version None)
Quarter: 2004Q4

REPORT INFORMATION
  Report Type: 
  Country: None (occurrence: None)
  Receive Date: 20041028
  Receipt Date: 20041019
  Transmission Date: 20050328
  Serious: Yes (Other)
  Sender: FDA-Public Use
  Company Number: 2004082345

PATIENT
  Sex: Female

DRUGS (7)
  1. NEURONTIN [Suspect]
     Indication: ILL-DEFINED DISORDER
  2. ZOLOFT [Suspect]
     Indication: ILL-DEFINED DISORDER
  3. METHOTREXATE [Suspect]
     Indication: ILL-DEFINED DISORDER
  4. INFLIXIMAB (INFLIXIMAB) [Suspect]
     Indication: ILL-DEFINED DISORDER
  5. HYDROXYCHLOROQUINE PHOSPHATE (HYDROXYCHLOROQUINE PHOSPHATE) [Suspect]
     Indication: ILL-DEFINED DISORDER
  6. TIZANIDINE HCL [Suspect]
     Indication: ILL-DEFINED DISORDER
  7. MORPHINE SULFATE [Concomitant]

REACTIONS (4)
  - CUTANEOUS LUPUS ERYTHEMATOSUS [None]
  - FIBROMYALGIA [None]
  - RHEUMATOID ARTHRITIS [None]
  - SJOGREN'S SYNDROME [None]
